FAERS Safety Report 11888254 (Version 1)
Quarter: 2016Q1

REPORT INFORMATION
  Report Type: Spontaneous
  Country: US (occurrence: None)
  Receive Date: 20160104
  Receipt Date: 20160104
  Transmission Date: 20160526
  Serious: No
  Sender: FDA-Public Use
  Company Number: None

PATIENT
  Age: 62 Year
  Sex: Male

DRUGS (19)
  1. IRON [Concomitant]
     Active Substance: IRON
  2. FLAX SEED [Concomitant]
     Active Substance: FLAX SEED
  3. NIACIN. [Concomitant]
     Active Substance: NIACIN
  4. DIPHENO/ATROP [Concomitant]
  5. TRIAMTERENE AND HYDROCHLOROTHIAZIDE [Concomitant]
     Active Substance: HYDROCHLOROTHIAZIDE\TRIAMTERENE
  6. ZYRTEC [Concomitant]
     Active Substance: CETIRIZINE HYDROCHLORIDE
  7. OXYCODONE [Concomitant]
     Active Substance: OXYCODONE
  8. DOCQLACE [Concomitant]
     Active Substance: DOCUSATE SODIUM
  9. VOTRIENT [Concomitant]
     Active Substance: PAZOPANIB HYDROCHLORIDE
  10. NIFEDIPINE. [Concomitant]
     Active Substance: NIFEDIPINE
  11. ONDANSETRON [Concomitant]
     Active Substance: ONDANSETRON
  12. MORPHINE [Concomitant]
     Active Substance: MORPHINE
  13. AFINITOR [Suspect]
     Active Substance: EVEROLIMUS
     Indication: NEOPLASM MALIGNANT
     Route: 048
     Dates: start: 20140509, end: 20151215
  14. MULTI-VITAMIN [Concomitant]
     Active Substance: .ALPHA.-TOCOPHEROL ACETATE, DL-\ASCORBIC ACID\CYANOCOBALAMIN\FLUORIDE ION\FOLIC ACID\NIACIN\PYRIDOXINE\RIBOFLAVIN\THIAMINE\VITAMIN A\VITAMIN D
  15. CRESTOR [Concomitant]
     Active Substance: ROSUVASTATIN CALCIUM
  16. PANTOPRAZOLE [Concomitant]
     Active Substance: PANTOPRAZOLE SODIUM
  17. WARFARIN [Concomitant]
     Active Substance: WARFARIN
  18. METOPROLOL. [Concomitant]
     Active Substance: METOPROLOL
  19. CALCIUM [Concomitant]
     Active Substance: CALCIUM

REACTIONS (1)
  - Therapy change [None]

NARRATIVE: CASE EVENT DATE: 20151215
